FAERS Safety Report 6653961-4 (Version None)
Quarter: 2010Q1

REPORT INFORMATION
  Report Type: 
  Country: None (occurrence: None)
  Receive Date: 20100326
  Receipt Date: 20100317
  Transmission Date: 20100710
  Serious: Yes (Death, Hospitalization)
  Sender: FDA-Public Use
  Company Number: US-JNJFOC-20090806440

PATIENT
  Age: 19 Year
  Sex: Male

DRUGS (3)
  1. EXTRA STRENGTH TYLENOL [Suspect]
     Indication: HEADACHE
  2. EXTRA STRENGTH TYLENOL [Suspect]
     Indication: MALAISE
  3. TYLENOL COLD + FLU PRODUCT [Suspect]
     Indication: MALAISE

REACTIONS (4)
  - ACCIDENTAL OVERDOSE [None]
  - DRUG ADMINISTRATION ERROR [None]
  - HEPATIC FAILURE [None]
  - RENAL FAILURE ACUTE [None]
